FAERS Safety Report 10530442 (Version 6)
Quarter: 2016Q4

REPORT INFORMATION
  Report Type: Spontaneous
  Country: US (occurrence: US)
  Receive Date: 20141021
  Receipt Date: 20161208
  Transmission Date: 20170206
  Serious: Yes (Hospitalization, Other)
  Sender: FDA-Public Use
  Company Number: US-ASTRAZENECA-2014SE74382

PATIENT
  Age: 67 Year
  Sex: Female
  Weight: 56.7 kg

DRUGS (18)
  1. PLAVIX [Concomitant]
     Active Substance: CLOPIDOGREL BISULFATE
  2. SYMBICORT [Suspect]
     Active Substance: BUDESONIDE\FORMOTEROL FUMARATE DIHYDRATE
     Indication: ASTHMA
     Dosage: 320 UG TWO TIMES A DAY
     Route: 055
  3. LISINOPRIL. [Suspect]
     Active Substance: LISINOPRIL
     Indication: HYPERTENSION
     Route: 048
     Dates: start: 20150512
  4. BABY ASPIRIN [Concomitant]
     Active Substance: ASPIRIN
     Indication: ANTICOAGULANT THERAPY
     Route: 048
  5. FISH OIL [Concomitant]
     Active Substance: FISH OIL
  6. CARVEDILOL. [Concomitant]
     Active Substance: CARVEDILOL
     Indication: CARDIAC DISORDER
     Route: 048
     Dates: start: 20150512
  7. VITAMIN D3 [Concomitant]
     Active Substance: CHOLECALCIFEROL
     Dosage: 2000, DAILY
     Route: 048
  8. SYMBICORT [Suspect]
     Active Substance: BUDESONIDE\FORMOTEROL FUMARATE DIHYDRATE
     Indication: ASTHMA
     Dosage: 160/4.5, 1 PUFF TWICE DAILY
     Route: 055
     Dates: start: 2005
  9. SYMBICORT [Suspect]
     Active Substance: BUDESONIDE\FORMOTEROL FUMARATE DIHYDRATE
     Indication: ASTHMA
     Dosage: 160/4.5 MCG, 160 UG, 1 PUFF, TWO TIMES A DAY
     Route: 055
     Dates: start: 2008, end: 2015
  10. LIPITOR [Concomitant]
     Active Substance: ATORVASTATIN CALCIUM
     Indication: CARDIAC DISORDER
     Route: 048
     Dates: start: 20150512
  11. POTASSIUM MEDICATION [Concomitant]
  12. SYMBICORT [Suspect]
     Active Substance: BUDESONIDE\FORMOTEROL FUMARATE DIHYDRATE
     Indication: ASTHMA
     Dosage: 160/4.5 MCG, 320 UG, 2 PUFF TWO TIMES A DAY
     Route: 055
     Dates: start: 201505
  13. ALBUTEROL. [Concomitant]
     Active Substance: ALBUTEROL
     Route: 055
  14. LEVOTHYROXINE. [Concomitant]
     Active Substance: LEVOTHYROXINE
     Indication: THYROID DISORDER
     Route: 048
  15. SPIRNOLACTONE [Concomitant]
     Indication: DIURETIC THERAPY
     Route: 048
  16. LIPITOR [Concomitant]
     Active Substance: ATORVASTATIN CALCIUM
     Indication: BLOOD CHOLESTEROL ABNORMAL
     Route: 048
     Dates: start: 20150512
  17. STEROIDS [Concomitant]
     Active Substance: UNSPECIFIED INGREDIENT
  18. COUMADIN [Concomitant]
     Active Substance: WARFARIN SODIUM

REACTIONS (14)
  - Myocardial infarction [Unknown]
  - Hypoacusis [Unknown]
  - Activities of daily living impaired [Unknown]
  - Drug dose omission [Unknown]
  - Arteriosclerosis [Unknown]
  - Pneumonia [Unknown]
  - Lung disorder [Unknown]
  - Hypertension [Unknown]
  - Haemorrhage [Unknown]
  - Staphylococcus test positive [Unknown]
  - Malaise [Unknown]
  - Dyspnoea [Unknown]
  - Contusion [Unknown]
  - Off label use [Recovered/Resolved]

NARRATIVE: CASE EVENT DATE: 2005
